FAERS Safety Report 13386436 (Version 1)
Quarter: 2017Q1

REPORT INFORMATION
  Report Type: Spontaneous
  Country: MX (occurrence: MX)
  Receive Date: 20170330
  Receipt Date: 20170330
  Transmission Date: 20170429
  Serious: Yes (Hospitalization, Other)
  Sender: FDA-Public Use
  Company Number: MX-JNJFOC-20170324287

PATIENT
  Age: 57 Year
  Sex: Female

DRUGS (2)
  1. TYLEX 750 [Suspect]
     Active Substance: ACETAMINOPHEN
     Indication: PRODUCT USED FOR UNKNOWN INDICATION
     Route: 065
  2. TYLEX 750 [Suspect]
     Active Substance: ACETAMINOPHEN
     Route: 065

REACTIONS (7)
  - Confusional state [Unknown]
  - Anxiety [Unknown]
  - Face oedema [Unknown]
  - Dyspnoea [Unknown]
  - Body temperature increased [Unknown]
  - Tachycardia [Unknown]
  - Generalised oedema [Unknown]

NARRATIVE: CASE EVENT DATE: 20170322
